FAERS Safety Report 22822610 (Version 11)
Quarter: 2024Q2

REPORT INFORMATION
  Report Type: Other
  Country: SA (occurrence: None)
  Receive Date: 20230815
  Receipt Date: 20240506
  Transmission Date: 20240716
  Serious: Yes (Hospitalization, Other)
  Sender: FDA-Public Use
  Company Number: SA-ROCHE-3327045

PATIENT
  Age: 1 Year
  Sex: Male
  Weight: 13 kg

DRUGS (1)
  1. EVRYSDI [Suspect]
     Active Substance: RISDIPLAM
     Indication: Spinal muscular atrophy
     Route: 048
     Dates: start: 20230320

REACTIONS (12)
  - Cough [Not Recovered/Not Resolved]
  - Influenza [Not Recovered/Not Resolved]
  - Hypersensitivity [Not Recovered/Not Resolved]
  - Productive cough [Recovered/Resolved]
  - Dyspnoea [Recovering/Resolving]
  - Oropharyngeal pain [Recovering/Resolving]
  - Nasopharyngitis [Recovered/Resolved]
  - Pyrexia [Recovering/Resolving]
  - Asthma [Recovered/Resolved]
  - Constipation [Recovered/Resolved]
  - Product administration error [Unknown]
  - Product dose omission in error [Unknown]

NARRATIVE: CASE EVENT DATE: 20230329
